FAERS Safety Report 17283470 (Version 1)
Quarter: 2020Q1

REPORT INFORMATION
  Report Type: Spontaneous
  Country: IT (occurrence: IT)
  Receive Date: 20200117
  Receipt Date: 20200117
  Transmission Date: 20200409
  Serious: Yes (Hospitalization)
  Sender: FDA-Public Use
  Company Number: IT-IBIGEN-2020.08131

PATIENT
  Age: 80 Year
  Sex: Male

DRUGS (7)
  1. PIPERACILLINA E TAZOBACTAM IBIGEN 4 G/ 0,5 G POLVERE PER SOLUZIONE PER [Suspect]
     Active Substance: PIPERACILLIN SODIUM\TAZOBACTAM SODIUM
     Indication: BACTERIAL INFECTION
     Route: 042
     Dates: start: 20200103, end: 20200103
  2. JARDIANCE [Concomitant]
     Active Substance: EMPAGLIFLOZIN
     Route: 048
  3. PARIET 20 MG COMPRESSE GASTRORESISTENTI [Concomitant]
     Route: 048
  4. TORVAST [Concomitant]
     Active Substance: ATORVASTATIN
     Route: 048
  5. SEQUACOR [Concomitant]
     Active Substance: BISOPROLOL
     Route: 048
  6. LORAZEPAM. [Concomitant]
     Active Substance: LORAZEPAM
     Route: 048
  7. LASIX [Concomitant]
     Active Substance: FUROSEMIDE
     Route: 048

REACTIONS (1)
  - Bronchostenosis [Recovering/Resolving]

NARRATIVE: CASE EVENT DATE: 20200103
